FAERS Safety Report 8472451-X (Version None)
Quarter: 2012Q2

REPORT INFORMATION
  Report Type: 
  Country: None (occurrence: None)
  Receive Date: 20120627
  Receipt Date: 20111221
  Transmission Date: 20120825
  Serious: Yes (Hospitalization)
  Sender: FDA-Public Use
  Company Number: US-AMGEN-USASP2011068478

PATIENT
  Age: 90 Year
  Sex: Male
  Weight: 60.771 kg

DRUGS (1)
  1. PROCRIT [Suspect]
     Indication: ANAEMIA

REACTIONS (7)
  - BODY HEIGHT DECREASED [None]
  - ANAEMIA [None]
  - DEMENTIA [None]
  - HYPERTENSION [None]
  - PYREXIA [None]
  - MALAISE [None]
  - URINARY TRACT INFECTION [None]
